FAERS Safety Report 17099217 (Version 1)
Quarter: 2019Q4

REPORT INFORMATION
  Report Type: Report from Study
  Country: CO (occurrence: CO)
  Receive Date: 20191202
  Receipt Date: 20191202
  Transmission Date: 20200122
  Serious: Yes (Life-Threatening, Hospitalization, Other)
  Sender: FDA-Public Use
  Company Number: NVSC2019CO013844

PATIENT
  Sex: Female
  Weight: 81 kg

DRUGS (3)
  1. CYCLOSPORINE. [Suspect]
     Active Substance: CYCLOSPORINE
     Route: 065
  2. REVOLADE [Suspect]
     Active Substance: ELTROMBOPAG
     Indication: APLASTIC ANAEMIA
     Dosage: 100 MG, QD
     Route: 048
  3. REVOLADE [Suspect]
     Active Substance: ELTROMBOPAG
     Dosage: 150 MG, QD
     Route: 048

REACTIONS (6)
  - Pneumonia [Recovered/Resolved]
  - Haemoglobin decreased [Unknown]
  - Aplastic anaemia [Unknown]
  - Underdose [Recovered/Resolved]
  - Platelet count decreased [Recovering/Resolving]
  - Oral infection [Recovered/Resolved]
